FAERS Safety Report 6772386-4 (Version None)
Quarter: 2010Q2

REPORT INFORMATION
  Report Type: 
  Country: None (occurrence: None)
  Receive Date: 20100616
  Receipt Date: 20100122
  Transmission Date: 20101027
  Serious: No
  Sender: FDA-Public Use
  Company Number: US-ASTRAZENECA-2009UW04804

PATIENT
  Age: 80 Year
  Sex: Female
  Weight: 65.8 kg

DRUGS (11)
  1. PULMICORT RESPULES [Suspect]
     Indication: CHRONIC OBSTRUCTIVE PULMONARY DISEASE
     Route: 055
     Dates: start: 20060101
  2. PULMICORT RESPULES [Suspect]
     Indication: PNEUMONIA
     Route: 055
     Dates: start: 20060101
  3. PULMICORT RESPULES [Suspect]
     Indication: BRONCHIECTASIS
     Route: 055
     Dates: start: 20060101
  4. PULMICORT RESPULES [Suspect]
     Route: 055
     Dates: start: 20080101
  5. PULMICORT RESPULES [Suspect]
     Route: 055
     Dates: start: 20080101
  6. PULMICORT RESPULES [Suspect]
     Route: 055
     Dates: start: 20080101
  7. PRIMIDONE [Concomitant]
     Indication: TREMOR
  8. INDERAL [Concomitant]
     Indication: TREMOR
  9. ZOLOFT [Concomitant]
     Indication: DEPRESSION
  10. MYSOLINE [Concomitant]
     Indication: TREMOR
  11. UNKNOWN NAME DRUG [Concomitant]
     Indication: DYSPEPSIA

REACTIONS (4)
  - ANXIETY [None]
  - FLATULENCE [None]
  - NAUSEA [None]
  - TREMOR [None]
